FAERS Safety Report 5777935-0 (Version None)
Quarter: 2008Q2

REPORT INFORMATION
  Report Type: 
  Country: None (occurrence: None)
  Receive Date: 20080618
  Receipt Date: 20080618
  Transmission Date: 20081010
  Serious: Yes (Life-Threatening, Disabling)
  Sender: FDA-Public Use
  Company Number: None

PATIENT
  Age: 17 Year
  Sex: Male
  Weight: 56.6996 kg

DRUGS (2)
  1. DIGITEK 0.125 MG CARALO 57664-0437-88 [Suspect]
     Indication: CARDIAC FAILURE
     Dosage: 0.125 MG 1 1/DAY
     Dates: start: 20080318, end: 20080422
  2. DIGITEK 0.125 MG CARALO 57664-0437-88 [Suspect]
     Indication: CONGENITAL ANOMALY
     Dosage: 0.125 MG 1 1/DAY
     Dates: start: 20080318, end: 20080422

REACTIONS (6)
  - DIZZINESS [None]
  - DYSPNOEA [None]
  - FATIGUE [None]
  - INCORRECT DOSE ADMINISTERED [None]
  - PHARMACEUTICAL PRODUCT COMPLAINT [None]
  - TRICUSPID VALVE INCOMPETENCE [None]
